FAERS Safety Report 22598059 (Version 1)
Quarter: 2023Q2

REPORT INFORMATION
  Report Type: Spontaneous
  Country: FR (occurrence: FR)
  Receive Date: 20230614
  Receipt Date: 20230614
  Transmission Date: 20230722
  Serious: Yes (Other)
  Sender: FDA-Public Use
  Company Number: FR-AFSSAPS-RN20223108

PATIENT
  Age: 44 Year
  Sex: Female
  Weight: 95 kg

DRUGS (1)
  1. HYDROXYZINE [Suspect]
     Active Substance: HYDROXYZINE HYDROCHLORIDE
     Indication: Prophylaxis
     Dosage: 1 CP THE EVENING BEFORE AND 2 CP THE MORNING OF THE EXAM
     Route: 048
     Dates: start: 20221024, end: 20221024

REACTIONS (8)
  - Amnesia [Recovered/Resolved]
  - Compulsive shopping [Recovered/Resolved]
  - Condition aggravated [Not Recovered/Not Resolved]
  - Confusional state [Recovered/Resolved]
  - Diplopia [Not Recovered/Not Resolved]
  - Dyspepsia [Recovering/Resolving]
  - Dyspnoea [Recovering/Resolving]
  - Salivary hypersecretion [Recovering/Resolving]

NARRATIVE: CASE EVENT DATE: 20221024
